FAERS Safety Report 4520396-X (Version None)
Quarter: 2004Q4

REPORT INFORMATION
  Report Type: 
  Country: None (occurrence: None)
  Receive Date: 20041203
  Receipt Date: 20041122
  Transmission Date: 20050328
  Serious: Yes (Hospitalization)
  Sender: FDA-Public Use
  Company Number: 2004097411

PATIENT
  Age: 72 Year
  Sex: Male

DRUGS (1)
  1. SULFASALAZINE TABLET (SULFASALAZINE) [Suspect]
     Indication: RHEUMATOID ARTHRITIS
     Dosage: (500 MG), ORAL
     Route: 048
     Dates: start: 20040528, end: 20040710

REACTIONS (6)
  - DRUG HYPERSENSITIVITY [None]
  - EOSINOPHILIA [None]
  - HEPATIC ENZYME INCREASED [None]
  - INTERSTITIAL LUNG DISEASE [None]
  - RASH [None]
  - RENAL FAILURE ACUTE [None]
